FAERS Safety Report 16706048 (Version 1)
Quarter: 2019Q3

REPORT INFORMATION
  Report Type: Spontaneous
  Country: US (occurrence: US)
  Receive Date: 20190815
  Receipt Date: 20190815
  Transmission Date: 20191004
  Serious: No
  Sender: FDA-Public Use
  Company Number: US-PFIZER INC-2019345484

PATIENT
  Age: 62 Year
  Sex: Female

DRUGS (3)
  1. TELMISARTAN. [Concomitant]
     Active Substance: TELMISARTAN
     Indication: HYPERTENSION
     Dosage: 80 MG, 1X/DAY (BY MOUTH ONCE DAILY)
     Route: 048
  2. IBRANCE [Suspect]
     Active Substance: PALBOCICLIB
     Indication: BREAST CANCER METASTATIC
     Dosage: 125 MG, CYCLIC(WITH DINNER ONCE DAILY FOR 21 DAYS AND THEN OFF FOR 7 DAYS)
     Route: 048
  3. ANASTROZOLE. [Suspect]
     Active Substance: ANASTROZOLE
     Indication: BREAST CANCER METASTATIC
     Dosage: 1 MG, 1X/DAY
     Route: 048

REACTIONS (6)
  - Pain [Unknown]
  - Platelet count decreased [Unknown]
  - Neoplasm progression [Unknown]
  - Fall [Unknown]
  - White blood cell count decreased [Unknown]
  - Red blood cell count decreased [Unknown]
